FAERS Safety Report 8295396-7 (Version None)
Quarter: 2012Q2

REPORT INFORMATION
  Report Type: 
  Country: None (occurrence: None)
  Receive Date: 20120418
  Receipt Date: 20120413
  Transmission Date: 20120825
  Serious: Yes (Other)
  Sender: FDA-Public Use
  Company Number: US-GILEAD-2012-0053622

PATIENT
  Sex: Male

DRUGS (4)
  1. NORVIR [Suspect]
     Indication: HIV INFECTION
  2. PRESETA [Suspect]
     Indication: PRODUCT USED FOR UNKNOWN INDICATION
  3. TRUVADA [Suspect]
     Indication: HIV INFECTION
     Dosage: UNK
  4. ISENTRESS [Suspect]
     Indication: HIV INFECTION

REACTIONS (1)
  - OSTEONECROSIS [None]
